FAERS Safety Report 5903322-8 (Version None)
Quarter: 2008Q3

REPORT INFORMATION
  Report Type: 
  Country: None (occurrence: None)
  Receive Date: 20080930
  Receipt Date: 20080926
  Transmission Date: 20090109
  Serious: Yes (Life-Threatening)
  Sender: FDA-Public Use
  Company Number: B0539327A

PATIENT
  Age: 53 Year
  Sex: Female

DRUGS (1)
  1. MALARONE [Suspect]
     Indication: MALARIA PROPHYLAXIS
     Route: 065
     Dates: start: 20080723, end: 20080726

REACTIONS (2)
  - NIGHTMARE [None]
  - SUICIDAL IDEATION [None]
